FAERS Safety Report 12241743 (Version 1)
Quarter: 2016Q2

REPORT INFORMATION
  Report Type: Report from Study
  Country: US (occurrence: US)
  Receive Date: 20160406
  Receipt Date: 20160406
  Transmission Date: 20160815
  Serious: Yes (Death, Hospitalization, Other)
  Sender: FDA-Public Use
  Company Number: US-BAYER-2016-000899

PATIENT
  Age: 45 Year
  Sex: Female
  Weight: 41.95 kg

DRUGS (8)
  1. ADEMPAS [Suspect]
     Active Substance: RIOCIGUAT
     Indication: PULMONARY ARTERIAL HYPERTENSION
     Dosage: 2 MG, TID
     Route: 048
  2. WARFARIN [Concomitant]
     Active Substance: WARFARIN
  3. ADEMPAS [Suspect]
     Active Substance: RIOCIGUAT
     Indication: PULMONARY ARTERIAL HYPERTENSION
     Dosage: 1.5 MG, TID (LAST SHIPPED 29-DEC-2015)
     Route: 048
     Dates: start: 20151229
  4. ADEMPAS [Suspect]
     Active Substance: RIOCIGUAT
     Indication: PULMONARY ARTERIAL HYPERTENSION
     Dosage: 1 MG, TID
     Route: 048
     Dates: start: 20151218
  5. COUMADIN [Concomitant]
     Active Substance: WARFARIN SODIUM
  6. ADEMPAS [Suspect]
     Active Substance: RIOCIGUAT
     Indication: PULMONARY ARTERIAL HYPERTENSION
     Dosage: 2 MG, TID
     Route: 048
  7. ADEMPAS [Suspect]
     Active Substance: RIOCIGUAT
     Indication: PULMONARY ARTERIAL HYPERTENSION
     Dosage: UNK
     Dates: start: 20151229
  8. OPSUMIT [Concomitant]
     Active Substance: MACITENTAN
     Dosage: UNK
     Dates: start: 20151222, end: 20151223

REACTIONS (19)
  - Somnolence [Unknown]
  - Mobility decreased [Unknown]
  - Nausea [Unknown]
  - Asthenia [Unknown]
  - Palpitations [Unknown]
  - Rash papular [Unknown]
  - Cerebral haemorrhage [Fatal]
  - Pyrexia [Unknown]
  - Decreased appetite [Unknown]
  - Fatigue [Unknown]
  - Angiogram [Unknown]
  - Oedema peripheral [Unknown]
  - Hypotension [Unknown]
  - Catheterisation cardiac [Unknown]
  - Dialysis [Unknown]
  - Decreased appetite [None]
  - Back pain [Unknown]
  - Dizziness [Unknown]
  - Muscle twitching [Unknown]
